FAERS Safety Report 24814728 (Version 1)
Quarter: 2025Q1

REPORT INFORMATION
  Report Type: Spontaneous
  Country: US (occurrence: None)
  Receive Date: 20250106
  Receipt Date: 20250106
  Transmission Date: 20250409
  Serious: Yes (Disabling)
  Sender: FDA-CTU
  Company Number: None

PATIENT
  Age: 69 Year
  Sex: Female
  Weight: 60.75 kg

DRUGS (1)
  1. PROZAC [Suspect]
     Active Substance: FLUOXETINE HYDROCHLORIDE
     Indication: Adjustment disorder with depressed mood
     Dosage: FREQUENCY : DAILY;?
     Route: 048
     Dates: start: 19930101, end: 19951001

REACTIONS (5)
  - Hypoaesthesia [None]
  - Sexual dysfunction [None]
  - Loss of libido [None]
  - Anhedonia [None]
  - Disturbance in sexual arousal [None]

NARRATIVE: CASE EVENT DATE: 19951001
